FAERS Safety Report 5656994-X (Version None)
Quarter: 2008Q1

REPORT INFORMATION
  Report Type: 
  Country: None (occurrence: None)
  Receive Date: 20080310
  Receipt Date: 20080227
  Transmission Date: 20080703
  Serious: Yes (Hospitalization)
  Sender: FDA-Public Use
  Company Number: B0511440A

PATIENT
  Age: 81 Year
  Sex: Male

DRUGS (10)
  1. AUGMENTIN '125' [Suspect]
     Route: 048
     Dates: start: 20080114, end: 20080120
  2. SINTROM [Suspect]
     Indication: DRUG USE FOR UNKNOWN INDICATION
     Route: 048
  3. SOLUPRED [Suspect]
     Route: 048
     Dates: start: 20080114, end: 20080120
  4. ELISOR [Concomitant]
     Dosage: 40MG PER DAY
     Route: 048
  5. CORVASAL [Concomitant]
     Indication: DRUG USE FOR UNKNOWN INDICATION
     Dosage: 2MG PER DAY
     Route: 048
  6. NEBIVOLOL HCL [Concomitant]
     Indication: DRUG USE FOR UNKNOWN INDICATION
     Dosage: 5MG PER DAY
     Route: 048
  7. TRIATEC [Concomitant]
     Indication: DRUG USE FOR UNKNOWN INDICATION
     Dosage: 2.5MG PER DAY
     Route: 048
  8. LASILIX [Concomitant]
     Indication: DRUG USE FOR UNKNOWN INDICATION
     Dosage: 40MG PER DAY
     Route: 048
  9. PROTELOS [Concomitant]
     Indication: DRUG USE FOR UNKNOWN INDICATION
     Route: 048
  10. HELICIDINE [Concomitant]
     Route: 048
     Dates: start: 20080114, end: 20080120

REACTIONS (5)
  - DIARRHOEA [None]
  - EPISTAXIS [None]
  - MELAENA [None]
  - OVERDOSE [None]
  - WEIGHT DECREASED [None]
